FAERS Safety Report 8196892-3 (Version None)
Quarter: 2012Q1

REPORT INFORMATION
  Report Type: 
  Country: None (occurrence: None)
  Receive Date: 20120309
  Receipt Date: 20120301
  Transmission Date: 20120608
  Serious: Yes (Other)
  Sender: FDA-Public Use
  Company Number: US-US-EMD SERONO, INC.-7098588

PATIENT
  Sex: Female
  Weight: 87 kg

DRUGS (3)
  1. REBIF [Suspect]
     Indication: MULTIPLE SCLEROSIS
     Route: 058
     Dates: start: 20110829
  2. REBIF [Suspect]
     Route: 058
     Dates: start: 20120101
  3. SYNTHROID [Concomitant]
     Indication: HYPERTHYROIDISM

REACTIONS (9)
  - HEPATIC ENZYME INCREASED [None]
  - INFLUENZA LIKE ILLNESS [None]
  - HYPOAESTHESIA [None]
  - BALANCE DISORDER [None]
  - ABDOMINAL PAIN [None]
  - HEMIPARESIS [None]
  - AUTOIMMUNE THYROIDITIS [None]
  - SWELLING [None]
  - PAIN IN EXTREMITY [None]
